FAERS Safety Report 8516150-4 (Version None)
Quarter: 2012Q3

REPORT INFORMATION
  Report Type: 
  Country: None (occurrence: None)
  Receive Date: 20120717
  Receipt Date: 20120705
  Transmission Date: 20120928
  Serious: Yes (Other)
  Sender: FDA-Public Use
  Company Number: NL-CELGENEUS-114-21880-12070431

PATIENT
  Sex: Female

DRUGS (2)
  1. REVLIMID [Suspect]
     Indication: MULTIPLE MYELOMA
     Route: 048
     Dates: start: 20110728, end: 20110901
  2. REVLIMID [Suspect]
     Route: 048
     Dates: start: 20110901, end: 20120404

REACTIONS (1)
  - MALIGNANT MELANOMA [None]
